FAERS Safety Report 8463806-8 (Version None)
Quarter: 2012Q2

REPORT INFORMATION
  Report Type: 
  Country: None (occurrence: None)
  Receive Date: 20120625
  Receipt Date: 20120621
  Transmission Date: 20120825
  Serious: No
  Sender: FDA-Public Use
  Company Number: US-BAYER-2012-062289

PATIENT
  Age: 31 Year
  Sex: Female
  Weight: 76 kg

DRUGS (1)
  1. ALEVE (CAPLET) [Suspect]
     Dosage: 1 U, PRN
     Route: 048

REACTIONS (1)
  - NAUSEA [None]
